FAERS Safety Report 9556913 (Version 1)
Quarter: 2013Q3

REPORT INFORMATION
  Report Type: Spontaneous
  Country: US (occurrence: None)
  Receive Date: 20130724
  Receipt Date: 20130724
  Transmission Date: 20140515
  Serious: Yes (Other)
  Sender: FDA-Public Use
  Company Number: PHEH2013US008086

PATIENT
  Age: 28 Year
  Sex: Female

DRUGS (1)
  1. GILENYA [Suspect]
     Indication: MULTIPLE SCLEROSIS
     Route: 048
     Dates: start: 20130405

REACTIONS (8)
  - Feeling abnormal [None]
  - Musculoskeletal chest pain [None]
  - Chest discomfort [None]
  - Electrocardiogram QT prolonged [None]
  - Blood pressure decreased [None]
  - Nausea [None]
  - Bradycardia [None]
  - Dyspnoea [None]
